FAERS Safety Report 10241050 (Version 1)
Quarter: 2014Q2

REPORT INFORMATION
  Report Type: Spontaneous
  Country: CH (occurrence: CH)
  Receive Date: 20140617
  Receipt Date: 20140617
  Transmission Date: 20141212
  Serious: Yes (Other)
  Sender: FDA-Public Use
  Company Number: CH-NOVOPROD-412675

PATIENT
  Age: 57 Year
  Sex: Female
  Weight: 105.9 kg

DRUGS (9)
  1. NOVORAPID [Suspect]
     Indication: TYPE 2 DIABETES MELLITUS
     Dosage: UNK
     Route: 058
     Dates: start: 20131129, end: 20131211
  2. ESTROFEM                           /00045401/ [Concomitant]
     Dosage: UNK
     Route: 065
  3. LANSOPRAZOLE [Concomitant]
     Dosage: UNK
     Route: 065
  4. ATENOLOL [Concomitant]
     Dosage: UNK
     Route: 065
  5. XENALON [Concomitant]
     Dosage: UNK
     Route: 065
  6. LYRICA [Concomitant]
     Dosage: UNK
     Route: 065
  7. COENZYM Q-10 [Concomitant]
     Dosage: UNK
     Route: 065
  8. LANTUS [Concomitant]
     Indication: TYPE 2 DIABETES MELLITUS
     Dosage: UNK
     Route: 065
  9. REMERON [Concomitant]
     Dosage: UNK
     Route: 065

REACTIONS (3)
  - Malaise [Recovered/Resolved]
  - Rash [Recovered/Resolved]
  - Abdominal distension [Recovered/Resolved]
